FAERS Safety Report 25258597 (Version 1)
Quarter: 2025Q2

REPORT INFORMATION
  Report Type: Spontaneous
  Country: FR (occurrence: FR)
  Receive Date: 20250501
  Receipt Date: 20250501
  Transmission Date: 20250716
  Serious: Yes (Hospitalization)
  Sender: ROCHE
  Company Number: None

PATIENT
  Age: 60 Year
  Sex: Male
  Weight: 59.3 kg

DRUGS (19)
  1. SODIUM CHLORIDE [Suspect]
     Active Substance: SODIUM CHLORIDE
     Indication: Fluid replacement
     Route: 058
     Dates: start: 20240826, end: 20240903
  2. CELLCEPT [Interacting]
     Active Substance: MYCOPHENOLATE MOFETIL
     Indication: Liver transplant
     Route: 048
     Dates: start: 2013, end: 20240912
  3. CERTICAN [Interacting]
     Active Substance: EVEROLIMUS
     Indication: Liver transplant
     Route: 048
     Dates: start: 20190214
  4. CHOLURSO 500 mg, comprim? pellicul? [Concomitant]
     Indication: Liver transplant
     Route: 048
  5. ENTECAVIR ARROW 0,5 mg, comprim? pellicul? [Concomitant]
     Indication: Chronic hepatitis B
     Route: 048
  6. POLYETHYLENE GLYCOL 4000 [Concomitant]
     Active Substance: POLYETHYLENE GLYCOL 4000
     Indication: Constipation
     Route: 048
     Dates: start: 20240820
  7. FIASP 100 unit?s/ml, solution injectable en stylo pr?rempli [Concomitant]
     Indication: Type 2 diabetes mellitus
     Route: 058
     Dates: start: 20240715
  8. INSULIN GLARGINE [Concomitant]
     Active Substance: INSULIN GLARGINE
     Indication: Type 2 diabetes mellitus
     Route: 058
     Dates: start: 20240725
  9. LOVENOX [Concomitant]
     Active Substance: ENOXAPARIN SODIUM
     Indication: Thrombosis prophylaxis
     Route: 058
     Dates: start: 20240812, end: 20241010
  10. KARDEGIC [Concomitant]
     Active Substance: ASPIRIN DL-LYSINE
     Indication: Cardiovascular event prophylaxis
     Route: 048
     Dates: start: 20240831
  11. AMLODIPINE ARROW 10 mg, g?lule [Concomitant]
     Indication: Hypertension
     Route: 048
     Dates: start: 20240803
  12. PERINDOPRIL ARROW 4 mg, comprim? s?cable [Concomitant]
     Indication: Hypertension
     Route: 048
     Dates: start: 20240803
  13. ALFUZOSINE EG L.P. 10 mg, comprim? ? lib?ration prolong?e [Concomitant]
     Indication: Bladder catheter permanent
     Route: 048
  14. AMOXICILLIN SODIUM [Concomitant]
     Active Substance: AMOXICILLIN SODIUM
     Indication: Urinary tract infection enterococcal
     Route: 042
     Dates: start: 20240902, end: 20240906
  15. CEFTAZIDIME VIATRIS 2 g, poudre pour solution injectable (IV) [Concomitant]
     Indication: Urinary tract infection enterococcal
     Route: 042
     Dates: start: 20240902, end: 20240916
  16. BACLOFENE ZENTIVA 10 mg, comprim? [Concomitant]
     Indication: Muscle spasticity
     Route: 048
     Dates: start: 20240812
  17. TRAMADOL [Concomitant]
     Active Substance: TRAMADOL
     Indication: Pain
     Route: 048
     Dates: start: 20240927, end: 20241007
  18. DOLIPRANE [Concomitant]
     Active Substance: ACETAMINOPHEN
     Indication: Pain
     Route: 048
     Dates: start: 20240817
  19. SLENYTO 5 mg, comprim? ? lib?ration prolong?e [Concomitant]
     Indication: Sleep disorder
     Route: 048
     Dates: start: 20240815, end: 20240919

REACTIONS (2)
  - Fasciitis [Recovered/Resolved]
  - Vascular access site extravasation [Recovered/Resolved]

NARRATIVE: CASE EVENT DATE: 20240903
